FAERS Safety Report 13397506 (Version 1)
Quarter: 2017Q2

REPORT INFORMATION
  Report Type: Spontaneous
  Country: BR (occurrence: BR)
  Receive Date: 20170403
  Receipt Date: 20170403
  Transmission Date: 20170830
  Serious: Yes (Death, Other)
  Sender: FDA-Public Use
  Company Number: BR-SA-2017SA054542

PATIENT
  Age: 59 Year

DRUGS (3)
  1. LEUCOVORIN. [Concomitant]
     Active Substance: LEUCOVORIN
     Indication: COLORECTAL CANCER STAGE III
     Route: 040
  2. 5-FU [Suspect]
     Active Substance: FLUOROURACIL
     Indication: COLORECTAL CANCER STAGE III
     Route: 040
  3. OXALIPLATIN. [Suspect]
     Active Substance: OXALIPLATIN
     Indication: COLORECTAL CANCER STAGE III
     Dosage: OVER 2 HOURS WEEKLY, AT WEEKS 1, 3
     Route: 042

REACTIONS (5)
  - Gastrointestinal toxicity [Unknown]
  - Diarrhoea [Unknown]
  - Sepsis [Fatal]
  - Haematotoxicity [Unknown]
  - Neutropenia [Unknown]
